FAERS Safety Report 7261240-X (Version None)
Quarter: 2011Q1

REPORT INFORMATION
  Report Type: 
  Country: None (occurrence: None)
  Receive Date: 20110130
  Receipt Date: 20100916
  Transmission Date: 20110831
  Serious: No
  Sender: FDA-Public Use
  Company Number: US-ABBOTT-10P-163-0672133-00

PATIENT
  Sex: Male

DRUGS (3)
  1. HUMIRA [Suspect]
     Indication: RHEUMATOID ARTHRITIS
     Dosage: WEEKLY MOVED
     Dates: start: 20081001, end: 20081101
  2. HUMIRA [Suspect]
     Dates: start: 20100301
  3. HUMIRA [Suspect]
     Dates: start: 20081101, end: 20100301

REACTIONS (5)
  - PHARYNGITIS STREPTOCOCCAL [None]
  - FATIGUE [None]
  - JOINT EFFUSION [None]
  - ULCER [None]
  - COUGH [None]
